FAERS Safety Report 20973081 (Version 1)
Quarter: 2022Q2

REPORT INFORMATION
  Report Type: Spontaneous
  Country: US (occurrence: US)
  Receive Date: 20220617
  Receipt Date: 20220617
  Transmission Date: 20220721
  Serious: No
  Sender: FDA-Public Use
  Company Number: US-009507513-2205USA008216

PATIENT
  Sex: Male

DRUGS (2)
  1. KEYTRUDA [Suspect]
     Active Substance: PEMBROLIZUMAB
     Indication: Renal cell carcinoma
     Dosage: 400 MILLIGRAM, EVERY 6 WEEKS
     Route: 042
     Dates: start: 20210104
  2. INLYTA [Suspect]
     Active Substance: AXITINIB
     Indication: Renal cell carcinoma
     Dosage: UNK
     Dates: start: 202102, end: 202104

REACTIONS (9)
  - Positive airway pressure therapy [Unknown]
  - Dysphonia [Recovering/Resolving]
  - Protein urine present [Unknown]
  - Haematocrit increased [Recovered/Resolved]
  - Haemoglobin increased [Recovered/Resolved]
  - Phlebotomy [Unknown]
  - Fatigue [Recovering/Resolving]
  - Lethargy [Recovering/Resolving]
  - Alopecia [Recovering/Resolving]

NARRATIVE: CASE EVENT DATE: 20210101
